FAERS Safety Report 15681317 (Version 1)
Quarter: 2018Q4

REPORT INFORMATION
  Report Type: Spontaneous
  Country: DK (occurrence: DK)
  Receive Date: 20181203
  Receipt Date: 20181203
  Transmission Date: 20190205
  Serious: Yes (Hospitalization, Other)
  Sender: FDA-Public Use
  Company Number: DK-SA-2018SA324725

PATIENT
  Age: 28 Year
  Sex: Female
  Weight: 72 kg

DRUGS (2)
  1. AUBAGIO [Suspect]
     Active Substance: TERIFLUNOMIDE
     Indication: MULTIPLE SCLEROSIS
     Dosage: 14 MG, QD
     Route: 048
     Dates: start: 201710, end: 201809
  2. MIRENA [Concomitant]
     Active Substance: LEVONORGESTREL
     Indication: HORMONE THERAPY
     Dosage: 1 DF
     Route: 015
     Dates: start: 20171124

REACTIONS (8)
  - Genital blister [Recovered/Resolved]
  - Sepsis [Recovered/Resolved]
  - Nausea [Recovered/Resolved]
  - Oral mucosal blistering [Recovered/Resolved]
  - Menorrhagia [Recovering/Resolving]
  - Alopecia [Recovering/Resolving]
  - Genital blister [Recovered/Resolved]
  - Genital blister [Recovered/Resolved]

NARRATIVE: CASE EVENT DATE: 201711
